FAERS Safety Report 19488153 (Version 1)
Quarter: 2021Q3

REPORT INFORMATION
  Report Type: Spontaneous
  Country: CH (occurrence: CH)
  Receive Date: 20210702
  Receipt Date: 20210702
  Transmission Date: 20211014
  Serious: Yes (Hospitalization, Other)
  Sender: FDA-Public Use
  Company Number: CH-ASTRAZENECA-2021A558285

PATIENT
  Age: 76 Year
  Sex: Female

DRUGS (19)
  1. VENTOLIN [Suspect]
     Active Substance: ALBUTEROL SULFATE
     Indication: CHRONIC OBSTRUCTIVE PULMONARY DISEASE
     Dosage: AS NECESSARY
     Route: 055
     Dates: start: 2014, end: 20210521
  2. NEBILET [Concomitant]
     Active Substance: NEBIVOLOL
     Route: 065
     Dates: start: 2014
  3. SEVIKAR [Suspect]
     Active Substance: AMLODIPINE BESYLATE\OLMESARTAN MEDOXOMIL
     Indication: HYPERTENSION
     Route: 065
     Dates: start: 2011
  4. ATORVASTATINE [Concomitant]
     Active Substance: ATORVASTATIN
     Route: 065
     Dates: start: 2011
  5. DAFALGAN [Concomitant]
     Active Substance: ACETAMINOPHEN
     Dosage: AS NECESSARY
     Route: 065
  6. QUETIAPIN [Suspect]
     Active Substance: QUETIAPINE
     Indication: MAJOR DEPRESSION
     Dosage: 25 MG AS NECESSARY
     Route: 048
     Dates: start: 2011
  7. BENERVA [Concomitant]
     Active Substance: THIAMINE HYDROCHLORIDE
     Route: 065
  8. DAXAS [Suspect]
     Active Substance: ROFLUMILAST
     Indication: CHRONIC OBSTRUCTIVE PULMONARY DISEASE
     Route: 048
     Dates: start: 2019
  9. TEMESTA EXPIDET [Suspect]
     Active Substance: LORAZEPAM
     Indication: ANXIETY DISORDER
     Route: 065
     Dates: start: 2015
  10. ZITHROMAX [Concomitant]
     Active Substance: AZITHROMYCIN DIHYDRATE
     Route: 065
     Dates: start: 2015
  11. LAXOBERON [Concomitant]
     Active Substance: SODIUM PICOSULFATE
     Dosage: AS NECESSARY
     Route: 065
  12. LUVIT D3 [Concomitant]
     Active Substance: CHOLECALCIFEROL
     Route: 065
  13. PREDNISONE. [Concomitant]
     Active Substance: PREDNISONE
     Indication: ANXIETY DISORDER
     Route: 065
     Dates: start: 20210521, end: 20210526
  14. TEMESTA EXPIDET [Suspect]
     Active Substance: LORAZEPAM
     Indication: ANXIETY DISORDER
     Dosage: AS NECESSARY
     Dates: start: 2015
  15. TEMESTA EXPIDET [Suspect]
     Active Substance: LORAZEPAM
     Indication: ANXIETY DISORDER
     Dosage: AS NECESSARY
     Route: 065
     Dates: start: 20210520
  16. ULTIBRO BREEZHALER [Concomitant]
     Active Substance: GLYCOPYRRONIUM\INDACATEROL
     Route: 065
     Dates: start: 2018
  17. QUETIAPIN [Suspect]
     Active Substance: QUETIAPINE
     Indication: MAJOR DEPRESSION
     Route: 048
     Dates: start: 2011
  18. CYMBALTA [Suspect]
     Active Substance: DULOXETINE HYDROCHLORIDE
     Indication: DEPRESSION
     Route: 048
     Dates: start: 2017
  19. BECOZYME [Concomitant]
     Active Substance: VITAMINS
     Route: 065

REACTIONS (3)
  - Action tremor [Not Recovered/Not Resolved]
  - Inappropriate antidiuretic hormone secretion [Unknown]
  - Hyponatraemia [Recovering/Resolving]

NARRATIVE: CASE EVENT DATE: 2019
